FAERS Safety Report 5162437-5 (Version None)
Quarter: 2006Q4

REPORT INFORMATION
  Report Type: 
  Country: None (occurrence: None)
  Receive Date: 20061128
  Receipt Date: 20061128
  Transmission Date: 20070319
  Serious: Yes (Other)
  Sender: FDA-Public Use
  Company Number: None

PATIENT
  Age: 64 Year
  Sex: Female
  Weight: 65.7716 kg

DRUGS (1)
  1. LEVAQUIN [Suspect]

REACTIONS (3)
  - MUSCULOSKELETAL PAIN [None]
  - PAIN IN EXTREMITY [None]
  - TENDON RUPTURE [None]
